FAERS Safety Report 8047167-4 (Version None)
Quarter: 2012Q1

REPORT INFORMATION
  Report Type: 
  Country: None (occurrence: None)
  Receive Date: 20120116
  Receipt Date: 20120110
  Transmission Date: 20120608
  Serious: Yes (Death, Hospitalization, Other)
  Sender: FDA-Public Use
  Company Number: US-AMGEN-USASP2012001821

PATIENT
  Age: 60 Year
  Sex: Female

DRUGS (2)
  1. ENBREL [Suspect]
     Indication: RHEUMATOID ARTHRITIS
     Dosage: 50 MG, QWK
     Dates: start: 20070715, end: 20110801
  2. ENBREL [Suspect]
     Indication: SCLERODERMA

REACTIONS (4)
  - METASTASES TO LIVER [None]
  - METASTASES TO KIDNEY [None]
  - RECTAL CANCER [None]
  - METASTASES TO LUNG [None]
